FAERS Safety Report 10307450 (Version 1)
Quarter: 2014Q3

REPORT INFORMATION
  Report Type: Spontaneous
  Country: US (occurrence: None)
  Receive Date: 20140714
  Receipt Date: 20140714
  Transmission Date: 20150326
  Serious: Yes (Disabling)
  Sender: FDA-Public Use
  Company Number: None

PATIENT
  Age: 36 Year
  Sex: Male
  Weight: 79.38 kg

DRUGS (1)
  1. LEVAQUIN [Suspect]
     Active Substance: LEVOFLOXACIN
     Dosage: ONCE DAILY TAKEN BY MOUTHX 7 DAYS.
     Route: 048
     Dates: start: 20140704, end: 20140709

REACTIONS (3)
  - Paralysis [None]
  - Hypoaesthesia [None]
  - Pain in extremity [None]

NARRATIVE: CASE EVENT DATE: 20140708
